FAERS Safety Report 8951243 (Version 2)
Quarter: 2012Q4

REPORT INFORMATION
  Report Type: 
  Country: AU (occurrence: AU)
  Receive Date: 20121207
  Receipt Date: 20121219
  Transmission Date: 20130627
  Serious: Yes (Other)
  Sender: FDA-Public Use
  Company Number: AU-ABBOTT-12P-008-1015575-00

PATIENT

DRUGS (2)
  1. HUMIRA [Suspect]
     Indication: SARCOIDOSIS
  2. PREDNISOLONE [Concomitant]
     Indication: PRODUCT USED FOR UNKNOWN INDICATION

REACTIONS (6)
  - Hemiparesis [Unknown]
  - Sensory disturbance [Unknown]
  - Pulmonary sarcoidosis [Unknown]
  - Headache [Unknown]
  - Central nervous system lesion [Unknown]
  - Meningeal disorder [Unknown]
